FAERS Safety Report 12211960 (Version 2)
Quarter: 2017Q2

REPORT INFORMATION
  Report Type: Spontaneous
  Country: US (occurrence: US)
  Receive Date: 20160325
  Receipt Date: 20170503
  Transmission Date: 20170830
  Serious: No
  Sender: FDA-Public Use
  Company Number: US-MALLINCKRODT-T201600863

PATIENT
  Age: 43 Year
  Sex: Male
  Weight: 84 kg

DRUGS (2)
  1. NALTREXONE [Suspect]
     Active Substance: NALTREXONE
     Dosage: 50MG, ONCE DAILYIN THE MORNING
     Route: 048
     Dates: start: 201603
  2. NALTREXONE [Suspect]
     Active Substance: NALTREXONE
     Indication: DEPENDENCE
     Dosage: 50 MG, BID
     Route: 065
     Dates: start: 2016, end: 2016

REACTIONS (10)
  - Psychomotor hyperactivity [Unknown]
  - Disturbance in attention [Unknown]
  - Drug effect increased [Unknown]
  - Off label use [Unknown]
  - Anger [Unknown]
  - Nervousness [Unknown]
  - Drug ineffective [Recovered/Resolved]
  - Feeling abnormal [Unknown]
  - Dizziness [Not Recovered/Not Resolved]
  - Hallucination, visual [Unknown]

NARRATIVE: CASE EVENT DATE: 201603
